FAERS Safety Report 6181532-5 (Version None)
Quarter: 2009Q2

REPORT INFORMATION
  Report Type: 
  Country: None (occurrence: None)
  Receive Date: 20090501
  Receipt Date: 20090406
  Transmission Date: 20091009
  Serious: Yes (Death, Other)
  Sender: FDA-Public Use
  Company Number: 2009S1006163

PATIENT

DRUGS (4)
  1. CLARITHROMYCIN [Suspect]
     Indication: DRUG USE FOR UNKNOWN INDICATION
  2. CO-AMOXICLAV (AMOXICILLIN W/CLAVULANATE POTASSIUM) [Suspect]
     Indication: DRUG USE FOR UNKNOWN INDICATION
  3. ERYTHROMYCIN [Suspect]
     Indication: DRUG USE FOR UNKNOWN INDICATION
  4. CEFTRIAXONE [Suspect]
     Indication: DRUG USE FOR UNKNOWN INDICATION

REACTIONS (1)
  - CLOSTRIDIAL INFECTION [None]
